FAERS Safety Report 9734588 (Version 1)
Quarter: 2013Q4

REPORT INFORMATION
  Report Type: Spontaneous
  Country: AU (occurrence: AU)
  Receive Date: 20131206
  Receipt Date: 20131206
  Transmission Date: 20140711
  Serious: Yes (Other)
  Sender: FDA-Public Use
  Company Number: AU-ROCHE-1310434

PATIENT
  Age: 44 Year
  Sex: Female

DRUGS (1)
  1. MIRCERA [Suspect]
     Indication: PRODUCT USED FOR UNKNOWN INDICATION
     Route: 065
     Dates: start: 20131021, end: 20131021

REACTIONS (3)
  - Pruritus [Recovered/Resolved]
  - Restlessness [Recovered/Resolved]
  - Urticaria [Recovered/Resolved]
